FAERS Safety Report 25927620 (Version 1)
Quarter: 2025Q4

REPORT INFORMATION
  Report Type: Spontaneous
  Country: CN (occurrence: CN)
  Receive Date: 20251016
  Receipt Date: 20251016
  Transmission Date: 20260118
  Serious: Yes (Hospitalization, Other)
  Sender: ABBVIE
  Company Number: CN-ABBVIE-6501387

PATIENT
  Age: 32 Year
  Sex: Female

DRUGS (5)
  1. BOTOX [Suspect]
     Active Substance: ONABOTULINUMTOXINA
     Indication: Skin wrinkling
     Dosage: TIME INTERVAL: AS NECESSARY: DOSE: 40 UNIT
     Route: 065
     Dates: start: 20250729, end: 20250729
  2. BOTOX [Suspect]
     Active Substance: ONABOTULINUMTOXINA
     Indication: Skin wrinkling
     Dosage: TIME INTERVAL: AS NECESSARY: DOSE: 40 UNIT
     Route: 065
     Dates: start: 20250729, end: 20250729
  3. DICLOFENAC [Concomitant]
     Active Substance: DICLOFENAC
     Indication: Product used for unknown indication
     Dosage: OPHTHALMIC SOLUTION
     Route: 047
  4. PREDNISONE [Concomitant]
     Active Substance: PREDNISONE
     Indication: Product used for unknown indication
     Dosage: 6 TABLET
     Route: 048
  5. LEVOFLOXACIN [Concomitant]
     Active Substance: LEVOFLOXACIN
     Indication: Product used for unknown indication
     Dosage: OPHTHALMIC SOLUTION
     Route: 047

REACTIONS (9)
  - Retinal detachment [Unknown]
  - Retinal tear [Unknown]
  - Vitreous opacities [Unknown]
  - Reduced facial expression [Unknown]
  - Visual acuity tests abnormal [Unknown]
  - Retinal disorder [Unknown]
  - Conjunctival hyperaemia [Unknown]
  - Blindness [Unknown]
  - Vitreous detachment [Unknown]

NARRATIVE: CASE EVENT DATE: 20250101
